FAERS Safety Report 12700557 (Version 1)
Quarter: 2016Q3

REPORT INFORMATION
  Report Type: Spontaneous
  Country: TW (occurrence: TW)
  Receive Date: 20160830
  Receipt Date: 20160830
  Transmission Date: 20161109
  Serious: Yes (Hospitalization)
  Sender: FDA-Public Use
  Company Number: TW-BAYER-2016-167336

PATIENT
  Age: 39 Year
  Sex: Female

DRUGS (1)
  1. ULTRAVIST [Suspect]
     Active Substance: IOPROMIDE
     Indication: UROGRAM
     Dosage: 40 ML, ONCE
     Route: 042
     Dates: start: 20160825, end: 20160825

REACTIONS (7)
  - Night sweats [None]
  - Mouth swelling [None]
  - Peripheral swelling [None]
  - Erythema [None]
  - Limb discomfort [None]
  - Dizziness [None]
  - Oral mucosal erythema [None]

NARRATIVE: CASE EVENT DATE: 20160825
